FAERS Safety Report 16898830 (Version 1)
Quarter: 2019Q4

REPORT INFORMATION
  Report Type: Spontaneous
  Country: US (occurrence: US)
  Receive Date: 20191008
  Receipt Date: 20191008
  Transmission Date: 20200122
  Serious: Yes (Hospitalization)
  Sender: FDA-Public Use
  Company Number: None

PATIENT
  Age: 68 Year
  Sex: Female
  Weight: 67.5 kg

DRUGS (1)
  1. TOLTERIDINE [Suspect]
     Active Substance: TOLTERODINE
     Indication: URGE INCONTINENCE
     Dosage: ?          QUANTITY:1 CAPSULE(S);?
     Route: 048
     Dates: start: 20170928, end: 20171005

REACTIONS (4)
  - Vomiting [None]
  - Headache [None]
  - Ileus paralytic [None]
  - Back pain [None]

NARRATIVE: CASE EVENT DATE: 20171005
